FAERS Safety Report 17581393 (Version 1)
Quarter: 2020Q1

REPORT INFORMATION
  Report Type: Spontaneous
  Country: US (occurrence: US)
  Receive Date: 20200319
  Receipt Date: 20200319
  Transmission Date: 20200409
  Serious: Yes (Other)
  Sender: FDA-Public Use
  Company Number: None

PATIENT
  Age: 11 Year
  Sex: Male
  Weight: 64.41 kg

DRUGS (1)
  1. METHYLPHENIDATE 20MG [Suspect]
     Active Substance: METHYLPHENIDATE
     Indication: ATTENTION DEFICIT/HYPERACTIVITY DISORDER
     Route: 048
     Dates: start: 20190413, end: 20190420

REACTIONS (2)
  - Rash [None]
  - Product dosage form issue [None]

NARRATIVE: CASE EVENT DATE: 20190413
